FAERS Safety Report 5625734-2 (Version None)
Quarter: 2008Q1

REPORT INFORMATION
  Report Type: 
  Country: None (occurrence: None)
  Receive Date: 20080207
  Receipt Date: 20080207
  Transmission Date: 20080703
  Serious: Yes (Other)
  Sender: FDA-Public Use
  Company Number: None

PATIENT
  Age: 58 Year
  Sex: Female
  Weight: 77.1115 kg

DRUGS (1)
  1. CHANTIX [Suspect]

REACTIONS (8)
  - ANHEDONIA [None]
  - CONFUSIONAL STATE [None]
  - DEPRESSION [None]
  - FEELING ABNORMAL [None]
  - MENTAL DISORDER [None]
  - PAIN [None]
  - SOCIAL AVOIDANT BEHAVIOUR [None]
  - THINKING ABNORMAL [None]
